FAERS Safety Report 24010955 (Version 1)
Quarter: 2024Q2

REPORT INFORMATION
  Report Type: Spontaneous
  Country: US (occurrence: None)
  Receive Date: 20240624
  Receipt Date: 20240624
  Transmission Date: 20240716
  Serious: Yes (unspecified)
  Sender: FDA-Public Use
  Company Number: None

PATIENT
  Age: 64 Year
  Sex: Female

DRUGS (14)
  1. REPATHA [Suspect]
     Active Substance: EVOLOCUMAB
     Indication: Dyslipidaemia
     Dosage: 140 MG/ML EVERY 14 DAYS SUBCUTANEOUS?
     Route: 058
     Dates: start: 20240524, end: 20240608
  2. TRELEGY ELLIPTA [Concomitant]
     Active Substance: FLUTICASONE FUROATE\UMECLIDINIUM BROMIDE\VILANTEROL TRIFENATATE
  3. Albuterol metered dose inhaler [Concomitant]
  4. ROSUVASTATIN [Concomitant]
     Active Substance: ROSUVASTATIN
  5. VITAMIN B12 [Concomitant]
     Active Substance: CYANOCOBALAMIN
  6. VITAMINS [Concomitant]
     Active Substance: VITAMINS
  7. LUTEIN [Concomitant]
     Active Substance: LUTEIN
  8. HERBALS\TURMERIC [Concomitant]
     Active Substance: HERBALS\TURMERIC
  9. VITAMIN C [Concomitant]
     Active Substance: ASCORBIC ACID
  10. ZINC SULFATE [Concomitant]
     Active Substance: ZINC SULFATE
  11. GARLIC [Concomitant]
     Active Substance: GARLIC
  12. DIETARY SUPPLEMENT [Concomitant]
     Active Substance: DIETARY SUPPLEMENT
  13. Ocuvite-Luteine [Concomitant]
  14. Glutathione with alpha lipoic acid [Concomitant]

REACTIONS (2)
  - Eye pain [None]
  - Ocular discomfort [None]

NARRATIVE: CASE EVENT DATE: 20240607
